FAERS Safety Report 4512305-4 (Version None)
Quarter: 2004Q4

REPORT INFORMATION
  Report Type: 
  Country: None (occurrence: None)
  Receive Date: 20041129
  Receipt Date: 20041103
  Transmission Date: 20050328
  Serious: Yes (Death)
  Sender: FDA-Public Use
  Company Number: F04200400295

PATIENT
  Age: 83 Year
  Sex: Male

DRUGS (6)
  1. FONDAPARINUX SODIUM [Suspect]
     Indication: THROMBOSIS PROPHYLAXIS
     Dosage: 2.5MG PER DAY
     Route: 058
     Dates: start: 20040712, end: 20040716
  2. AMITRIPTYLIN [Concomitant]
     Dosage: 25MG TWICE PER DAY
     Route: 048
  3. DOXEPIN HCL [Concomitant]
     Dosage: 50MG PER DAY
     Route: 048
  4. METOPROLOL [Concomitant]
     Indication: HYPERTENSION
     Dosage: 50MG TWICE PER DAY
     Route: 048
  5. ANTIHYPERTENSIVES [Concomitant]
     Indication: HYPERTENSION
  6. DIABETES MEDICATION [Concomitant]
     Indication: DIABETES MELLITUS

REACTIONS (2)
  - CEREBRAL INFARCTION [None]
  - HEMIPARESIS [None]
